FAERS Safety Report 10456849 (Version 1)
Quarter: 2014Q3

REPORT INFORMATION
  Report Type: Spontaneous
  Country: FR (occurrence: FR)
  Receive Date: 20140916
  Receipt Date: 20140916
  Transmission Date: 20150326
  Serious: Yes (Hospitalization)
  Sender: FDA-Public Use
  Company Number: FR-SA-2014SA124691

PATIENT
  Age: 82 Year
  Sex: Female

DRUGS (12)
  1. COUMADINE [Suspect]
     Active Substance: WARFARIN SODIUM
     Route: 048
  2. KALEORID [Concomitant]
     Active Substance: POTASSIUM CHLORIDE
     Dosage: PROLONGED RELEASE, STRENGTH: 100 MG
  3. ROCEPHINE [Concomitant]
     Active Substance: CEFTRIAXONE SODIUM
     Indication: CARDIAC FAILURE
  4. LASILIX [Suspect]
     Active Substance: FUROSEMIDE
     Route: 048
     Dates: end: 20140506
  5. LASILIX [Suspect]
     Active Substance: FUROSEMIDE
     Route: 065
  6. ROCEPHINE [Concomitant]
     Active Substance: CEFTRIAXONE SODIUM
     Indication: BRONCHOPNEUMOPATHY
  7. BISOPROLOL [Concomitant]
     Active Substance: BISOPROLOL
     Dosage: STRENGTH: 2.5 MG
  8. TAVANIC [Concomitant]
     Active Substance: LEVOFLOXACIN
     Indication: BRONCHOPNEUMOPATHY
  9. COUMADINE [Suspect]
     Active Substance: WARFARIN SODIUM
     Route: 065
  10. TAVANIC [Concomitant]
     Active Substance: LEVOFLOXACIN
     Indication: CARDIAC FAILURE
  11. CACIT D3 [Concomitant]
     Active Substance: CALCIUM\CHOLECALCIFEROL
  12. DIAMICRON [Concomitant]
     Active Substance: GLICLAZIDE

REACTIONS (4)
  - Overdose [Unknown]
  - International normalised ratio increased [Recovered/Resolved]
  - Dehydration [Recovered/Resolved]
  - Renal failure acute [Recovered/Resolved]

NARRATIVE: CASE EVENT DATE: 20140506
